FAERS Safety Report 6002204-3 (Version None)
Quarter: 2008Q4

REPORT INFORMATION
  Report Type: 
  Country: None (occurrence: None)
  Receive Date: 20081212
  Receipt Date: 20081209
  Transmission Date: 20090506
  Serious: Yes (Death, Hospitalization)
  Sender: FDA-Public Use
  Company Number: 2008-187455-NL

PATIENT
  Age: 38 Year
  Sex: Female

DRUGS (1)
  1. NUVARING [Suspect]

REACTIONS (1)
  - SEPSIS [None]
